FAERS Safety Report 13345291 (Version 1)
Quarter: 2017Q1

REPORT INFORMATION
  Report Type: Spontaneous
  Country: US (occurrence: US)
  Receive Date: 20170317
  Receipt Date: 20170317
  Transmission Date: 20170428
  Serious: Yes (Other)
  Sender: FDA-Public Use
  Company Number: US-LUPIN PHARMACEUTICALS INC.-2017-01176

PATIENT
  Age: 91 Year
  Sex: Female
  Weight: 46.26 kg

DRUGS (2)
  1. NARCO [Concomitant]
     Indication: PAIN
     Dosage: UNK
     Route: 065
  2. GAVILYTE G [Suspect]
     Active Substance: POLYETHYLENE GLYCOL 3350\POTASSIUM CHLORIDE\SODIUM BICARBONATE\SODIUM CHLORIDE\SODIUM SULFATE ANHYDROUS
     Indication: CONSTIPATION
     Dosage: SINGLE, ABOUT A HALF BOTTLE
     Route: 048
     Dates: start: 20170302, end: 20170302

REACTIONS (2)
  - Haematochezia [Unknown]
  - Product use issue [Unknown]

NARRATIVE: CASE EVENT DATE: 20170302
